FAERS Safety Report 8915040 (Version 3)
Quarter: 2013Q1

REPORT INFORMATION
  Report Type: Spontaneous
  Country: US (occurrence: US)
  Receive Date: 20121119
  Receipt Date: 20130201
  Transmission Date: 20140127
  Serious: Yes (Hospitalization, Other)
  Sender: FDA-Public Use
  Company Number: US-ENDO PHARMACEUTICALS INC.-OPCR20122022

PATIENT
  Age: 38 Year
  Sex: 0

DRUGS (1)
  1. OPANA ER [Suspect]
     Indication: DRUG ABUSE
     Dosage: UNKNOWN
     Dates: start: 2012

REACTIONS (6)
  - Thrombotic thrombocytopenic purpura [Unknown]
  - Renal failure acute [Unknown]
  - Drug abuse [Unknown]
  - Wrong technique in drug usage process [Unknown]
  - Incorrect route of drug administration [Unknown]
  - Urinary tract infection [Unknown]
